FAERS Safety Report 6247372-3 (Version None)
Quarter: 2009Q2

REPORT INFORMATION
  Report Type: 
  Country: None (occurrence: None)
  Receive Date: 20090626
  Receipt Date: 20090619
  Transmission Date: 20091009
  Serious: Yes (Hospitalization)
  Sender: FDA-Public Use
  Company Number: B0579767A

PATIENT
  Age: 24 Year
  Sex: Male

DRUGS (7)
  1. AUGMENTIN '125' [Suspect]
     Dosage: 2G THREE TIMES PER DAY
     Route: 048
     Dates: start: 20090315, end: 20090317
  2. CEFTRIAXONE [Suspect]
     Route: 042
     Dates: start: 20090317, end: 20090326
  3. ACETAMINOPHEN [Suspect]
     Dosage: 1G THREE TIMES PER DAY
     Route: 042
     Dates: start: 20090318, end: 20090323
  4. ACUPAN [Suspect]
     Dosage: 20MG THREE TIMES PER DAY
     Route: 042
     Dates: start: 20090318, end: 20090323
  5. PRIMPERAN [Suspect]
     Dosage: 10MG THREE TIMES PER DAY
     Route: 042
     Dates: start: 20090318, end: 20090323
  6. ERYTHROCINE [Suspect]
     Dosage: 1G THREE TIMES PER DAY
     Route: 048
     Dates: start: 20090315, end: 20090317
  7. RULID [Suspect]
     Dosage: 300MG PER DAY
     Route: 048
     Dates: start: 20090319, end: 20090326

REACTIONS (3)
  - COAGULOPATHY [None]
  - LIVER FUNCTION TEST ABNORMAL [None]
  - MIXED LIVER INJURY [None]
